FAERS Safety Report 9950897 (Version 1)
Quarter: 2014Q1

REPORT INFORMATION
  Report Type: Report from Study
  Country: US (occurrence: US)
  Receive Date: 20140304
  Receipt Date: 20140304
  Transmission Date: 20141002
  Serious: No
  Sender: FDA-Public Use
  Company Number: US-ABBVIE-13P-163-1066430-00

PATIENT
  Age: 28 Year
  Sex: Female

DRUGS (4)
  1. HUMIRA [Suspect]
     Indication: COLITIS ULCERATIVE
     Dates: start: 20130130
  2. ASACOL [Concomitant]
     Indication: PRODUCT USED FOR UNKNOWN INDICATION
  3. ALEVE [Concomitant]
     Indication: ABDOMINAL PAIN
  4. ALEVE [Concomitant]
     Indication: MUSCLE SPASMS

REACTIONS (7)
  - Dizziness [Not Recovered/Not Resolved]
  - Injection site pain [Not Recovered/Not Resolved]
  - Injection site pain [Not Recovered/Not Resolved]
  - Contusion [Not Recovered/Not Resolved]
  - Feeling abnormal [Unknown]
  - Abdominal pain [Recovered/Resolved]
  - Fall [Unknown]
